FAERS Safety Report 17609035 (Version 1)
Quarter: 2020Q2

REPORT INFORMATION
  Report Type: Spontaneous
  Country: IT (occurrence: IT)
  Receive Date: 20200401
  Receipt Date: 20200401
  Transmission Date: 20200713
  Serious: Yes (Other)
  Sender: FDA-Public Use
  Company Number: IT-AUROBINDO-AUR-APL-2020-015972

PATIENT
  Age: 66 Year
  Sex: Male

DRUGS (2)
  1. CARBOPLATIN. [Suspect]
     Active Substance: CARBOPLATIN
     Indication: SQUAMOUS CELL CARCINOMA OF HEAD AND NECK
     Dosage: 8 CYCLICAL (WEEKLY CARBOPLATIN AT  DAYS 1, 8, AND 15 EVERY 4 WEEKS)
     Route: 065
     Dates: start: 201709, end: 2018
  2. PACLITAXEL. [Suspect]
     Active Substance: PACLITAXEL
     Indication: SQUAMOUS CELL CARCINOMA OF HEAD AND NECK
     Dosage: 8 CYCLICAL (WEEKLY CARBOPLATIN AT  DAYS 1, 8, AND 15 EVERY 4 WEEKS)
     Route: 065
     Dates: start: 201709, end: 2018

REACTIONS (1)
  - Neurotoxicity [Unknown]

NARRATIVE: CASE EVENT DATE: 2018
